FAERS Safety Report 21447000 (Version 1)
Quarter: 2022Q4

REPORT INFORMATION
  Report Type: Spontaneous
  Country: US (occurrence: US)
  Receive Date: 20221012
  Receipt Date: 20221012
  Transmission Date: 20230113
  Serious: Yes (Hospitalization)
  Sender: FDA-Public Use
  Company Number: US-ELI_LILLY_AND_COMPANY-US202210003377

PATIENT
  Age: 77 Year
  Sex: Female

DRUGS (3)
  1. HUMALOG [Suspect]
     Active Substance: INSULIN LISPRO
     Indication: Product used for unknown indication
     Dosage: 7 U, UNKNOWN
     Route: 065
     Dates: start: 2003
  2. HUMALOG [Suspect]
     Active Substance: INSULIN LISPRO
     Dosage: 7 U, UNKNOWN
     Route: 065
     Dates: start: 2003
  3. LANTUS [Concomitant]
     Active Substance: INSULIN GLARGINE
     Indication: Product used for unknown indication
     Dosage: 14 U, UNKNOWN
     Route: 065

REACTIONS (8)
  - Intestinal obstruction [Recovered/Resolved]
  - Cerebrovascular accident [Recovering/Resolving]
  - Blood glucose decreased [Recovered/Resolved]
  - Macular degeneration [Unknown]
  - Blood glucose increased [Not Recovered/Not Resolved]
  - Limb discomfort [Unknown]
  - Ear discomfort [Unknown]
  - Incorrect dose administered [Unknown]

NARRATIVE: CASE EVENT DATE: 20220315
